FAERS Safety Report 20308972 (Version 1)
Quarter: 2022Q1

REPORT INFORMATION
  Report Type: Spontaneous
  Country: US (occurrence: None)
  Receive Date: 20220106
  Receipt Date: 20220106
  Transmission Date: 20220423
  Serious: No
  Sender: FDA-Public Use
  Company Number: None

PATIENT
  Sex: Female

DRUGS (1)
  1. VUMERITY [Suspect]
     Active Substance: DIROXIMEL FUMARATE
     Indication: Multiple sclerosis
     Dosage: 462MG TWICE A DAY BY MOUTH
     Route: 048
     Dates: start: 20211129

REACTIONS (7)
  - Drug ineffective [None]
  - Mood altered [None]
  - Anxiety [None]
  - Flushing [None]
  - Eye pain [None]
  - Headache [None]
  - Lethargy [None]
